FAERS Safety Report 6223965-4 (Version None)
Quarter: 2009Q2

REPORT INFORMATION
  Report Type: 
  Country: None (occurrence: None)
  Receive Date: 20090612
  Receipt Date: 20090305
  Transmission Date: 20091009
  Serious: No
  Sender: FDA-Public Use
  Company Number: US-ABBOTT-09P-163-0561039-00

PATIENT
  Sex: Female
  Weight: 58.112 kg

DRUGS (7)
  1. HUMIRA [Suspect]
     Indication: PSORIATIC ARTHROPATHY
     Route: 058
     Dates: start: 20080601
  2. HUMIRA [Suspect]
     Indication: PSORIASIS
  3. OLUX [Concomitant]
     Indication: PSORIASIS
     Route: 061
     Dates: start: 20070101, end: 20090201
  4. TACLONEX [Concomitant]
     Indication: DRUG USE FOR UNKNOWN INDICATION
     Route: 061
     Dates: start: 20090201, end: 20090303
  5. AMBIEN [Concomitant]
     Indication: INSOMNIA
  6. CHINESE HERBS [Concomitant]
     Indication: DRUG USE FOR UNKNOWN INDICATION
     Route: 048
  7. CHONDROITIN [Concomitant]
     Indication: DRUG USE FOR UNKNOWN INDICATION
     Route: 048

REACTIONS (1)
  - PSORIASIS [None]
